FAERS Safety Report 26187705 (Version 1)
Quarter: 2025Q4

REPORT INFORMATION
  Report Type: Spontaneous
  Country: US (occurrence: None)
  Receive Date: 20251222
  Receipt Date: 20251222
  Transmission Date: 20260119
  Serious: Yes (Life-Threatening, Disabling, Other)
  Sender: FDA-CTU
  Company Number: None

PATIENT

DRUGS (1)
  1. ZYPREXA [Suspect]
     Active Substance: OLANZAPINE

REACTIONS (4)
  - Diarrhoea [None]
  - Heavy menstrual bleeding [None]
  - Hypersomnia [None]
  - Weight increased [None]

NARRATIVE: CASE EVENT DATE: 20130601
